FAERS Safety Report 6401853-8 (Version None)
Quarter: 2009Q4

REPORT INFORMATION
  Report Type: 
  Country: None (occurrence: None)
  Receive Date: 20091015
  Receipt Date: 20091005
  Transmission Date: 20100525
  Serious: Yes (Other)
  Sender: FDA-Public Use
  Company Number: US-ELI_LILLY_AND_COMPANY-US200910000863

PATIENT

DRUGS (1)
  1. FLUOXETINE HCL [Suspect]
     Dosage: UNK, UNKNOWN
     Route: 065

REACTIONS (3)
  - DRUG SCREEN POSITIVE [None]
  - HOMICIDE [None]
  - ROAD TRAFFIC ACCIDENT [None]
